FAERS Safety Report 18144795 (Version 1)
Quarter: 2020Q3

REPORT INFORMATION
  Report Type: Spontaneous
  Country: US (occurrence: US)
  Receive Date: 20200812
  Receipt Date: 20200812
  Transmission Date: 20201103
  Serious: Yes (Other)
  Sender: FDA-Public Use
  Company Number: None

PATIENT

DRUGS (1)
  1. FERRLECIT [Suspect]
     Active Substance: SODIUM FERRIC GLUCONATE COMPLEX
     Dosage: ?          OTHER FREQUENCY:ONCE;?
     Route: 042

REACTIONS (5)
  - Back pain [None]
  - Injection site swelling [None]
  - Dizziness [None]
  - Hypotension [None]
  - Dyspnoea [None]
